FAERS Safety Report 10434573 (Version 1)
Quarter: 2014Q3

REPORT INFORMATION
  Report Type: Spontaneous
  Country: US (occurrence: US)
  Receive Date: 20140905
  Receipt Date: 20140905
  Transmission Date: 20150326
  Serious: Yes (Hospitalization)
  Sender: FDA-Public Use
  Company Number: US-ASTRAZENECA-2014SE65729

PATIENT
  Sex: Female

DRUGS (5)
  1. GEODON [Suspect]
     Active Substance: ZIPRASIDONE HYDROCHLORIDE\ZIPRASIDONE MESYLATE
     Dosage: UNKNOWN UNK
     Route: 065
  2. LAMICTAL [Concomitant]
     Active Substance: LAMOTRIGINE
     Dosage: NR
  3. QUETIAPINE FUMURATE [Suspect]
     Active Substance: QUETIAPINE FUMARATE
     Indication: SLEEP DISORDER
     Dosage: DOSAGE BEING REDUCED BY 50 MG NEXT THREE WEEKS, THEN IT WILL BE REDUCED BY 25 MG
     Route: 048
     Dates: start: 201306
  4. LEXAPRO [Suspect]
     Active Substance: ESCITALOPRAM OXALATE
     Indication: DEPRESSED MOOD
     Dosage: UNKNOWN UNK
     Route: 065
     Dates: start: 201405
  5. XANAX [Concomitant]
     Active Substance: ALPRAZOLAM
     Dosage: NR

REACTIONS (8)
  - Off label use [None]
  - Flat affect [Unknown]
  - Weight decreased [Unknown]
  - Weight increased [Unknown]
  - Drug ineffective for unapproved indication [Unknown]
  - Insomnia [Unknown]
  - Anxiety [Unknown]
  - Depressed mood [Unknown]

NARRATIVE: CASE EVENT DATE: 201405
